FAERS Safety Report 4952052-8 (Version None)
Quarter: 2006Q1

REPORT INFORMATION
  Report Type: 
  Country: None (occurrence: None)
  Receive Date: 20060320
  Receipt Date: 20060308
  Transmission Date: 20060701
  Serious: Yes (Hospitalization)
  Sender: FDA-Public Use
  Company Number: 222849

PATIENT
  Age: 48 Year
  Sex: Female

DRUGS (12)
  1. RITUXAN [Suspect]
     Indication: DIFFUSE LARGE B-CELL LYMPHOMA
     Dosage: 600 MG, INTRAVENOUS
     Route: 042
     Dates: start: 20051122
  2. DOXORUBICIN HYDROCHLORIDE [Concomitant]
  3. ONCOVIN [Concomitant]
  4. ENDOXAN (CYCLOPHOSPHAMIDE) [Concomitant]
  5. PREDONINE (PREDNISOLONE, PREDNISOLONE ACETATE, PREDNISOLONE SODIUM SUC [Concomitant]
  6. POLARAMINE [Concomitant]
  7. LOXONIN (LOXOPROFEN SODIUM) [Concomitant]
  8. MODACIN (CEFTAZIDIME) [Concomitant]
  9. MEROPEN  (MEROPENEM) [Concomitant]
  10. AMIKACIN [Concomitant]
  11. NEO-MINOPHAGEN C (LICORICE) [Concomitant]
  12. SALINE (SODIUM CHLORIDE) [Concomitant]

REACTIONS (6)
  - ALANINE AMINOTRANSFERASE INCREASED [None]
  - ASPARTATE AMINOTRANSFERASE INCREASED [None]
  - BLOOD ALKALINE PHOSPHATASE [None]
  - GAMMA-GLUTAMYLTRANSFERASE INCREASED [None]
  - LIVER DISORDER [None]
  - URTICARIA [None]
